FAERS Safety Report 12671252 (Version 3)
Quarter: 2017Q2

REPORT INFORMATION
  Report Type: Spontaneous
  Country: US (occurrence: US)
  Receive Date: 20160822
  Receipt Date: 20170518
  Transmission Date: 20170830
  Serious: Yes (Disabling, Other)
  Sender: FDA-Public Use
  Company Number: US-BRISTOL-MYERS SQUIBB COMPANY-BMS-2016-067100

PATIENT
  Sex: Male
  Weight: 68.4 kg

DRUGS (5)
  1. KENALOG-40 [Suspect]
     Active Substance: TRIAMCINOLONE ACETONIDE
     Indication: POLYARTHRITIS
     Dosage: 60 MG, UNK
     Route: 030
     Dates: start: 201605
  2. ASPIRIN                            /00002701/ [Concomitant]
     Active Substance: ASPIRIN
     Indication: PRODUCT USED FOR UNKNOWN INDICATION
     Route: 065
  3. TRAMADOL. [Suspect]
     Active Substance: TRAMADOL
     Indication: PRODUCT USED FOR UNKNOWN INDICATION
     Route: 065
  4. DEPO-MEDROL [Suspect]
     Active Substance: METHYLPREDNISOLONE ACETATE
     Indication: PAIN
     Dosage: UNK
     Route: 030
     Dates: start: 201507
  5. KENALOG-40 [Suspect]
     Active Substance: TRIAMCINOLONE ACETONIDE
     Indication: PAIN
     Route: 065

REACTIONS (11)
  - Haemorrhage [Unknown]
  - Anaemia [Unknown]
  - Weight fluctuation [Unknown]
  - Pain [Not Recovered/Not Resolved]
  - Drug use disorder [Unknown]
  - Disability [Unknown]
  - Muscle atrophy [Unknown]
  - Overdose [Unknown]
  - Weight decreased [Unknown]
  - Tooth fracture [Unknown]
  - Drug ineffective [Unknown]
